FAERS Safety Report 6693998-2 (Version None)
Quarter: 2010Q2

REPORT INFORMATION
  Report Type: 
  Country: None (occurrence: None)
  Receive Date: 20100423
  Receipt Date: 20100421
  Transmission Date: 20101027
  Serious: Yes (Hospitalization, Other)
  Sender: FDA-Public Use
  Company Number: FR-ROXANE LABORATORIES, INC.-2010-RO-00445RO

PATIENT
  Age: 10 Year
  Sex: Male

DRUGS (8)
  1. OXCARBAZEPINE [Suspect]
     Indication: EPILEPSY
     Dosage: 1050 MG
  2. OXCARBAZEPINE [Suspect]
  3. OXCARBAZEPINE [Suspect]
  4. OXCARBAZEPINE [Suspect]
  5. CLARITHROMYCIN [Suspect]
     Indication: RESPIRATORY TRACT INFECTION
     Dosage: 500 MG
  6. LAMOTRIGINE [Suspect]
     Indication: EPILEPSY
     Dosage: 100 MG
  7. TOPIRAMATE [Suspect]
     Indication: EPILEPSY
     Dosage: 200 MG
  8. SODIUM VALPROATE [Suspect]
     Indication: EPILEPSY
     Dosage: 400 MG

REACTIONS (6)
  - DRUG LEVEL BELOW THERAPEUTIC [None]
  - DRUG TOXICITY [None]
  - EPILEPSY [None]
  - HYPOCALCAEMIA [None]
  - RESPIRATORY TRACT INFECTION [None]
  - UNRESPONSIVE TO STIMULI [None]
